FAERS Safety Report 7654525-6 (Version None)
Quarter: 2011Q3

REPORT INFORMATION
  Report Type: 
  Country: None (occurrence: None)
  Receive Date: 20110803
  Receipt Date: 20110720
  Transmission Date: 20111222
  Serious: Yes (Hospitalization)
  Sender: FDA-Public Use
  Company Number: US-ASTRAZENECA-2011SE43388

PATIENT
  Age: 39 Year
  Sex: Female
  Weight: 54.4 kg

DRUGS (5)
  1. FISH OIL [Concomitant]
     Dosage: EVERY DAY
     Route: 048
  2. METOPROLOL TARTRATE [Concomitant]
     Indication: HEART RATE INCREASED
     Route: 048
  3. SEROQUEL [Suspect]
     Indication: BIPOLAR DISORDER
     Route: 048
  4. LORAZEPAM [Concomitant]
     Route: 048
  5. PROPOXYPHENE HYDROCHLORIDE [Concomitant]
     Route: 048

REACTIONS (2)
  - RENAL FAILURE [None]
  - GASTRIC ULCER HAEMORRHAGE [None]
